FAERS Safety Report 7602553-9 (Version None)
Quarter: 2011Q3

REPORT INFORMATION
  Report Type: 
  Country: None (occurrence: None)
  Receive Date: 20110701
  Receipt Date: 20090113
  Transmission Date: 20111222
  Serious: Yes (Other)
  Sender: FDA-Public Use
  Company Number: SIM_00014_2011

PATIENT
  Sex: Female

DRUGS (1)
  1. DRY EYE RELIEF (HOMEOPATHIC) [Suspect]
     Indication: DRY EYE
     Dosage: (DF OPHTHALMIC)
     Route: 047
     Dates: start: 20090101, end: 20090113

REACTIONS (7)
  - CONJUNCTIVITIS [None]
  - EYE DISORDER [None]
  - CONJUNCTIVAL HAEMORRHAGE [None]
  - CONJUNCTIVITIS ALLERGIC [None]
  - OCULAR ICTERUS [None]
  - OCULAR HYPERAEMIA [None]
  - EYELID OEDEMA [None]
